FAERS Safety Report 5311428-X (Version None)
Quarter: 2007Q2

REPORT INFORMATION
  Report Type: 
  Country: None (occurrence: None)
  Receive Date: 20070430
  Receipt Date: 20070418
  Transmission Date: 20071010
  Serious: Yes (Other)
  Sender: FDA-Public Use
  Company Number: US-JNJFOC-20070404087

PATIENT
  Age: 46 Year
  Sex: Female

DRUGS (3)
  1. INVEGA [Suspect]
     Indication: SCHIZOPHRENIA, PARANOID TYPE
     Route: 048
  2. DEPAKOTE [Concomitant]
     Route: 048
  3. DESERIL [Concomitant]
     Route: 048

REACTIONS (2)
  - COGWHEEL RIGIDITY [None]
  - TACHYCARDIA [None]
